FAERS Safety Report 10543950 (Version 1)
Quarter: 2014Q4

REPORT INFORMATION
  Report Type: Spontaneous
  Country: FR (occurrence: None)
  Receive Date: 20141023
  Receipt Date: 20141023
  Transmission Date: 20150529
  Serious: Yes (Life-Threatening)
  Sender: FDA-Public Use
  Company Number: 2588407

PATIENT
  Age: 27 Year
  Sex: Male
  Weight: 85 kg

DRUGS (19)
  1. DEXMEDETOMIDINE HYDROCHLORIDE. [Suspect]
     Active Substance: DEXMEDETOMIDINE HYDROCHLORIDE
     Indication: AGITATION
     Dosage: NOT OTHERWISE SPECIFIED
     Route: 042
     Dates: start: 20140917, end: 20140917
  2. ZOPICLONE [Concomitant]
     Active Substance: ZOPICLONE
  3. KETAMINE [Suspect]
     Active Substance: KETAMINE
     Indication: AGITATION
     Dosage: NOT OTHERWISE SPECIFIED
     Route: 042
     Dates: start: 20140915
  4. METRONIDAZOLE. [Concomitant]
     Active Substance: METRONIDAZOLE
  5. OLANZAPINE. [Concomitant]
     Active Substance: OLANZAPINE
  6. TROPATEPINE HYDROCHLORIDE [Concomitant]
     Active Substance: TROPATEPINE HYDROCHLORIDE
  7. CLONIDINE. [Suspect]
     Active Substance: CLONIDINE
     Indication: AGITATION
     Dosage: NOT OTHERWISE SPECIFIED
     Route: 042
     Dates: start: 20140915, end: 20140917
  8. VALPROMIDE [Concomitant]
     Active Substance: VALPROMIDE
  9. ALIMEMAZINE TARTRATE [Concomitant]
     Active Substance: TRIMEPRAZINE
  10. SODIUM ALGINATE W/ SODIUM BICARBONATE [Concomitant]
  11. ACAMPROSATE CALCIUM. [Concomitant]
     Active Substance: ACAMPROSATE CALCIUM
  12. DIPOTASSIUM CLORAZEPATE [Concomitant]
     Active Substance: CLORAZEPATE DIPOTASSIUM
  13. PROPOFOL. [Suspect]
     Active Substance: PROPOFOL
     Indication: AGITATION
     Dosage: NOT OTHERWISE SPECIFIED
     Route: 042
     Dates: start: 20140915
  14. PAROXETINE HYDROCHLORIDE. [Concomitant]
     Active Substance: PAROXETINE HYDROCHLORIDE
  15. ESOMEPRAZOLE [Concomitant]
     Active Substance: ESOMEPRAZOLE
  16. REMIFENTANIL HYDROCHLORIDE [Suspect]
     Active Substance: REMIFENTANIL HYDROCHLORIDE
     Indication: AGITATION
     Dosage: NOT OTHERWISE SPECIFIED
     Route: 042
     Dates: start: 20140915
  17. CEFOTAXIME SODIUM [Concomitant]
     Active Substance: CEFOTAXIME SODIUM
  18. CYAMEMAZINE TARTRATE [Concomitant]
     Active Substance: CYAMEMAZINE
  19. THIAMINE HYDROCHLORIDE. [Concomitant]
     Active Substance: THIAMINE HYDROCHLORIDE

REACTIONS (6)
  - Cardiac arrest [None]
  - Bundle branch block right [None]
  - Bradycardia [None]
  - Presyncope [None]
  - Aspiration [None]
  - Cough [None]

NARRATIVE: CASE EVENT DATE: 20140917
